FAERS Safety Report 16652263 (Version 1)
Quarter: 2019Q3

REPORT INFORMATION
  Report Type: Spontaneous
  Country: US (occurrence: US)
  Receive Date: 20190617
  Receipt Date: 20190617
  Transmission Date: 20191004
  Serious: Yes (Other)
  Sender: FDA-Public Use
  Company Number: None

PATIENT
  Age: 31 Year
  Sex: Female

DRUGS (3)
  1. BUPRENORPHINE 5 MCG/HR PATCH [Suspect]
     Active Substance: BUPRENORPHINE
     Indication: PAIN
     Route: 062
     Dates: start: 201905, end: 201906
  2. BUPRENORPHINE 5 MCG/HR PATCH [Suspect]
     Active Substance: BUPRENORPHINE
     Indication: RENAL FAILURE
     Route: 062
     Dates: start: 201905, end: 201906
  3. BUPRENORPHINE PATCH [Suspect]
     Active Substance: BUPRENORPHINE
     Indication: RENAL FAILURE

REACTIONS (2)
  - Malaise [None]
  - Product substitution issue [None]

NARRATIVE: CASE EVENT DATE: 20190617
